FAERS Safety Report 10521523 (Version 1)
Quarter: 2014Q4

REPORT INFORMATION
  Report Type: Other
  Country: GB (occurrence: GB)
  Receive Date: 20141016
  Receipt Date: 20141016
  Transmission Date: 20150528
  Serious: Yes (Other)
  Sender: FDA-Public Use
  Company Number: GB-SUN PHARMACEUTICAL INDUSTRIES LTD-2014SUN02130

PATIENT

DRUGS (4)
  1. TURMERIC [Concomitant]
     Active Substance: TURMERIC
  2. PARACETAMOL [Concomitant]
     Active Substance: ACETAMINOPHEN
  3. LETROZOLE 2.5 MG FILMCOATED TABLETS [Suspect]
     Active Substance: LETROZOLE
     Indication: BREAST CANCER
     Dosage: 1 DF, QD
     Route: 048
     Dates: start: 20121201, end: 20130615
  4. ANASTROZOLE  1MG FILM COATED TABLETS [Suspect]
     Active Substance: ANASTROZOLE
     Indication: BREAST CANCER
     Dosage: 1 DF, QD
     Route: 048
     Dates: start: 20130701

REACTIONS (3)
  - Bladder pain [Not Recovered/Not Resolved]
  - Bone pain [Not Recovered/Not Resolved]
  - Urinary tract infection [Not Recovered/Not Resolved]

NARRATIVE: CASE EVENT DATE: 20121201
